FAERS Safety Report 6050695-4 (Version None)
Quarter: 2009Q1

REPORT INFORMATION
  Report Type: 
  Country: None (occurrence: None)
  Receive Date: 20090121
  Receipt Date: 20090121
  Transmission Date: 20090719
  Serious: Yes (Hospitalization)
  Sender: FDA-Public Use
  Company Number: None

PATIENT
  Age: 74 Year
  Sex: Female
  Weight: 100.6985 kg

DRUGS (2)
  1. MAGNEVIST [Suspect]
     Indication: RENAL VESSEL DISORDER
     Dosage: 20 CC ONE TIME DOSE IV
     Route: 042
  2. MAGNEVIST [Suspect]
     Indication: VASCULAR TEST
     Dosage: 20 CC ONE TIME DOSE IV
     Route: 042

REACTIONS (2)
  - HYPERSENSITIVITY [None]
  - HYPERTENSION [None]
